FAERS Safety Report 14656398 (Version 1)
Quarter: 2018Q1

REPORT INFORMATION
  Report Type: Spontaneous
  Country: US (occurrence: US)
  Receive Date: 20180317
  Receipt Date: 20180317
  Transmission Date: 20180509
  Serious: No
  Sender: FDA-Public Use
  Company Number: None

PATIENT
  Age: 55 Year
  Sex: Female

DRUGS (1)
  1. HUMIRA [Suspect]
     Active Substance: ADALIMUMAB
     Indication: CROHN^S DISEASE
     Dosage: 160 MG ON DAY 1 AND 80MG ON DAY 15 EVERY 2 WEEKS
     Route: 058
     Dates: start: 20180213

REACTIONS (2)
  - Ocular icterus [None]
  - Oedema peripheral [None]

NARRATIVE: CASE EVENT DATE: 20180307
